FAERS Safety Report 5075906-3 (Version None)
Quarter: 2006Q3

REPORT INFORMATION
  Report Type: 
  Country: None (occurrence: None)
  Receive Date: 20060807
  Receipt Date: 20060807
  Transmission Date: 20061208
  Serious: No
  Sender: FDA-Public Use
  Company Number: None

PATIENT
  Sex: Female
  Weight: 71.2 kg

DRUGS (5)
  1. CYTOTEC [Suspect]
     Indication: ABORTION INDUCED
     Dosage: 600 MCG  ONCE PO
     Route: 048
     Dates: start: 20060802, end: 20060802
  2. DOCUSATE SODIUM [Concomitant]
  3. FERROUS GLUCONATE [Concomitant]
  4. MAGNESIUM SULFATE [Concomitant]
  5. ACETAMINOPHEN [Concomitant]

REACTIONS (3)
  - ERYTHEMA [None]
  - TACHYCARDIA [None]
  - TREMOR [None]
